FAERS Safety Report 13718030 (Version 1)
Quarter: 2017Q3

REPORT INFORMATION
  Report Type: Report from Study
  Country: MX (occurrence: MX)
  Receive Date: 20170705
  Receipt Date: 20170705
  Transmission Date: 20171127
  Serious: Yes (Death, Life-Threatening, Hospitalization)
  Sender: FDA-Public Use
  Company Number: MX-JNJFOC-20170627388

PATIENT
  Age: 68 Year
  Sex: Male
  Weight: 79.2 kg

DRUGS (3)
  1. DEXRAZOXANE. [Suspect]
     Active Substance: DEXRAZOXANE
     Indication: EPITHELIOID SARCOMA
     Route: 042
     Dates: start: 20160419
  2. PEGFILGRASTIM [Concomitant]
     Active Substance: PEGFILGRASTIM
     Route: 065
  3. DOXORUBICIN [Suspect]
     Active Substance: DOXORUBICIN
     Indication: EPITHELIOID SARCOMA
     Dosage: ON DAY 1
     Route: 042
     Dates: start: 20160419

REACTIONS (10)
  - Decreased appetite [Unknown]
  - Anaemia [Unknown]
  - Myocarditis [Recovered/Resolved with Sequelae]
  - Off label use [Unknown]
  - Fatigue [Unknown]
  - Abdominal pain [Unknown]
  - Asthenia [Unknown]
  - Product use in unapproved indication [Unknown]
  - Nausea [Unknown]
  - Vomiting [Unknown]

NARRATIVE: CASE EVENT DATE: 20160419
